FAERS Safety Report 11073984 (Version 1)
Quarter: 2015Q2

REPORT INFORMATION
  Report Type: Spontaneous
  Country: GB (occurrence: GB)
  Receive Date: 20150429
  Receipt Date: 20150429
  Transmission Date: 20150821
  Serious: Yes (Other)
  Sender: FDA-Public Use
  Company Number: GB-AUROBINDO-AUR-APL-2015-03620

PATIENT
  Age: 1 Year
  Sex: Female
  Weight: 7 kg

DRUGS (6)
  1. CLENIL MODULITE [Concomitant]
     Active Substance: BECLOMETHASONE DIPROPIONATE
     Indication: PRODUCT USED FOR UNKNOWN INDICATION
     Dosage: 1-2 PUFF TWO TIMES A DAY
     Route: 065
     Dates: start: 20150313
  2. CETIRIZINE [Concomitant]
     Active Substance: CETIRIZINE HYDROCHLORIDE
     Indication: PRODUCT USED FOR UNKNOWN INDICATION
     Dosage: 1.5 ML, TWO TIMES A DAY
     Route: 065
     Dates: start: 20150118
  3. DALIVIT [Concomitant]
     Indication: PRODUCT USED FOR UNKNOWN INDICATION
     Dosage: 0.3 ML, ONCE A DAY
     Route: 065
     Dates: start: 20130930
  4. MONTELUKAST [Suspect]
     Active Substance: MONTELUKAST SODIUM
     Indication: PRODUCT USED FOR UNKNOWN INDICATION
     Dosage: UNK
     Route: 065
     Dates: start: 20150413
  5. FOLIC ACID. [Concomitant]
     Active Substance: FOLIC ACID
     Indication: PRODUCT USED FOR UNKNOWN INDICATION
     Dosage: 1 ML, EVERY WEEK
     Route: 065
     Dates: start: 20130930
  6. SODIUM FEREDETATE [Concomitant]
     Active Substance: SODIUM FEREDETATE
     Indication: PRODUCT USED FOR UNKNOWN INDICATION
     Dosage: 1 ML, ONCE A DAY
     Route: 065
     Dates: start: 20130930

REACTIONS (6)
  - Skin exfoliation [Recovered/Resolved]
  - Contusion [Recovered/Resolved]
  - Platelet count increased [Recovered/Resolved]
  - Petechiae [Recovered/Resolved]
  - Product use issue [Unknown]
  - White blood cell count increased [Recovered/Resolved]

NARRATIVE: CASE EVENT DATE: 20150413
